FAERS Safety Report 15992918 (Version 1)
Quarter: 2019Q1

REPORT INFORMATION
  Report Type: Spontaneous
  Country: DE (occurrence: DE)
  Receive Date: 20190221
  Receipt Date: 20190221
  Transmission Date: 20190418
  Serious: Yes (Hospitalization)
  Sender: FDA-Public Use
  Company Number: DE-TEVA-2019-DE-1014074

PATIENT
  Age: 16 Year
  Sex: Female
  Weight: 57 kg

DRUGS (3)
  1. FENTANYL. [Concomitant]
     Active Substance: FENTANYL
     Indication: MEDICAL DEVICE REMOVAL
     Dosage: DAILY DOSE: 1.5 MG MILLGRAM(S) EVERY TOTAL
     Route: 042
  2. PROPOFOL. [Suspect]
     Active Substance: PROPOFOL
     Indication: MEDICAL DEVICE REMOVAL
     Dosage: DAILY DOSE: 200 MG MILLGRAM(S) EVERY TOTAL
     Route: 042
  3. DROPERIDOL. [Concomitant]
     Active Substance: DROPERIDOL
     Indication: MEDICAL DEVICE REMOVAL
     Dosage: DAILY DOSE: 1.25 MG MILLGRAM(S) EVERY TOTAL
     Route: 042

REACTIONS (1)
  - Pancreatitis acute [Unknown]

NARRATIVE: CASE EVENT DATE: 20190111
